FAERS Safety Report 11419813 (Version 1)
Quarter: 2015Q3

REPORT INFORMATION
  Report Type: Spontaneous
  Country: US (occurrence: None)
  Receive Date: 20150825
  Receipt Date: 20150825
  Transmission Date: 20151125
  Serious: Yes (Life-Threatening, Hospitalization)
  Sender: FDA-Public Use
  Company Number: None

PATIENT
  Age: 62 Year
  Sex: Female

DRUGS (1)
  1. ENBREL [Suspect]
     Active Substance: ETANERCEPT
     Indication: RHEUMATOID ARTHRITIS
     Dosage: 50MG/ML?ONCE WEEKLY?SUB Q
     Dates: start: 20141011

REACTIONS (4)
  - Gastroenteritis [None]
  - Acute kidney injury [None]
  - Sepsis [None]
  - Urinary tract infection [None]
